FAERS Safety Report 7125011-7 (Version None)
Quarter: 2010Q4

REPORT INFORMATION
  Report Type: 
  Country: None (occurrence: None)
  Receive Date: 20101123
  Receipt Date: 20101123
  Transmission Date: 20110411
  Serious: No
  Sender: FDA-Public Use
  Company Number: None

PATIENT
  Age: 5 Year
  Sex: Male

DRUGS (1)
  1. TYLENOL-500 [Suspect]
     Indication: BRONCHITIS

REACTIONS (17)
  - BACK PAIN [None]
  - BRONCHITIS [None]
  - CRYING [None]
  - DECREASED APPETITE [None]
  - DIARRHOEA [None]
  - DRUG INEFFECTIVE [None]
  - GAIT DISTURBANCE [None]
  - INGUINAL HERNIA [None]
  - LYMPHADENOPATHY [None]
  - NASOPHARYNGITIS [None]
  - PAIN [None]
  - PAIN IN EXTREMITY [None]
  - PELVIC PAIN [None]
  - SOMNOLENCE [None]
  - SPLENOMEGALY [None]
  - URINARY INCONTINENCE [None]
  - WEIGHT DECREASED [None]
